FAERS Safety Report 8107939-4 (Version None)
Quarter: 2012Q1

REPORT INFORMATION
  Report Type: 
  Country: None (occurrence: None)
  Receive Date: 20120202
  Receipt Date: 20120124
  Transmission Date: 20120608
  Serious: Yes (Other)
  Sender: FDA-Public Use
  Company Number: US-MERCK-1201USA03355

PATIENT
  Age: 67 Year
  Sex: Male

DRUGS (8)
  1. CISPLATIN [Concomitant]
     Route: 065
  2. GEMZAR [Concomitant]
     Route: 065
  3. EMEND [Suspect]
     Dosage: DAY 2
     Route: 048
     Dates: start: 20110101, end: 20110101
  4. EMEND [Suspect]
     Dosage: DAY 2
     Route: 048
     Dates: start: 20110101, end: 20110101
  5. EMEND [Suspect]
     Indication: PROPHYLAXIS OF NAUSEA AND VOMITING
     Dosage: DAY 1
     Route: 048
     Dates: start: 20110101, end: 20110101
  6. EMEND [Suspect]
     Dosage: DAY 3
     Route: 048
     Dates: start: 20110101, end: 20110101
  7. EMEND [Suspect]
     Dosage: DAY 1
     Route: 048
     Dates: start: 20110101, end: 20110101
  8. EMEND [Suspect]
     Dosage: DAY 3
     Route: 048
     Dates: start: 20110101, end: 20110101

REACTIONS (2)
  - METASTASES TO BONE [None]
  - METASTASES TO LIVER [None]
